FAERS Safety Report 4549487-4 (Version None)
Quarter: 2005Q1

REPORT INFORMATION
  Report Type: 
  Country: None (occurrence: None)
  Receive Date: 20050106
  Receipt Date: 20050103
  Transmission Date: 20050727
  Serious: Yes (Death)
  Sender: FDA-Public Use
  Company Number: 2005PK00015

PATIENT
  Age: 69 Year
  Sex: Male

DRUGS (2)
  1. CASODEX [Suspect]
     Indication: PROSTATE CANCER
     Dates: start: 20040812, end: 20041104
  2. ZOLADEX [Suspect]
     Indication: PROSTATE CANCER
     Dosage: 3.6 GM Q4WK SQ
     Route: 058
     Dates: start: 20040812, end: 20041020

REACTIONS (1)
  - ACUTE MYOCARDIAL INFARCTION [None]
